FAERS Safety Report 8252241-3 (Version None)
Quarter: 2012Q2

REPORT INFORMATION
  Report Type: 
  Country: None (occurrence: None)
  Receive Date: 20120402
  Receipt Date: 20110908
  Transmission Date: 20120825
  Serious: No
  Sender: FDA-Public Use
  Company Number: US-ABBOTT-11P-163-0853147-00

PATIENT
  Age: 40 Year
  Sex: Male
  Weight: 68.1 kg

DRUGS (3)
  1. ANDROGEL [Suspect]
     Indication: BLOOD TESTOSTERONE DECREASED
     Dosage: PUMP
     Dates: start: 20090101
  2. ANDROGEL [Suspect]
     Dosage: PUMP
  3. UNKNOWN MEDICATIONS [Concomitant]
     Indication: PRODUCT USED FOR UNKNOWN INDICATION

REACTIONS (6)
  - INCORRECT STORAGE OF DRUG [None]
  - DRUG INEFFECTIVE [None]
  - APPETITE DISORDER [None]
  - FEELING ABNORMAL [None]
  - LIBIDO DISORDER [None]
  - BLOOD TESTOSTERONE DECREASED [None]
